FAERS Safety Report 8886590 (Version 1)
Quarter: 2012Q4

REPORT INFORMATION
  Report Type: Report from Study
  Country: US (occurrence: US)
  Receive Date: 20121105
  Receipt Date: 20121105
  Transmission Date: 20130627
  Serious: Yes (Hospitalization, Other)
  Sender: FDA-Public Use
  Company Number: US-ABBOTT-12P-163-1002204-00

PATIENT
  Age: 60 Year
  Sex: Male

DRUGS (9)
  1. HUMIRA [Suspect]
     Indication: RHEUMATOID ARTHRITIS
  2. PREDNISONE [Suspect]
     Indication: ARTHRITIS
  3. VICODIN [Concomitant]
     Indication: PAIN
     Route: 048
  4. ONGLYZA [Concomitant]
     Indication: DIABETES MELLITUS
     Dosage: 2.5mg daily
     Route: 048
  5. LISINOPRIL [Concomitant]
     Indication: HYPERTENSION
     Route: 048
  6. MORPHINE [Concomitant]
     Indication: PRODUCT USED FOR UNKNOWN INDICATION
  7. METOPROLOL [Concomitant]
     Indication: HYPERTENSION
  8. NITROGLYCERIN [Concomitant]
     Indication: CHEST PAIN
  9. LASIX [Concomitant]
     Indication: SWELLING

REACTIONS (3)
  - Ulcer haemorrhage [Not Recovered/Not Resolved]
  - Arthritis [Unknown]
  - Myocardial infarction [Unknown]
